FAERS Safety Report 20542118 (Version 1)
Quarter: 2022Q1

REPORT INFORMATION
  Report Type: Spontaneous
  Country: US (occurrence: US)
  Receive Date: 20220302
  Receipt Date: 20220302
  Transmission Date: 20220423
  Serious: Yes (Life-Threatening, Congenital Anomaly, Other)
  Sender: FDA-Public Use
  Company Number: US-SLATE RUN PHARMACEUTICALS-22US000928

PATIENT

DRUGS (7)
  1. AZITHROMYCIN [Suspect]
     Active Substance: AZITHROMYCIN
     Indication: Maternal exposure during pregnancy
     Dosage: 2 H PRIOR TO DELIVERY
     Route: 015
  2. UNSPECIFIED INGREDIENT [Concomitant]
     Active Substance: UNSPECIFIED INGREDIENT
     Indication: Maternal exposure during pregnancy
     Route: 015
  3. COVID-19 CONVALESCENT PLASMA [Concomitant]
     Active Substance: COVID-19 CONVALESCENT PLASMA
     Indication: Maternal exposure during pregnancy
     Route: 015
  4. BETAMETHASONE [Concomitant]
     Active Substance: BETAMETHASONE
     Indication: Maternal exposure during pregnancy
     Route: 015
  5. MAGNESIUM SULFATE [Concomitant]
     Active Substance: MAGNESIUM SULFATE
     Indication: Maternal exposure during pregnancy
     Route: 015
  6. AMPICILLIN [Concomitant]
     Active Substance: AMPICILLIN
     Indication: Maternal exposure during pregnancy
     Dosage: 2 DOSAGE FORM
  7. AMPICILLIN [Concomitant]
     Active Substance: AMPICILLIN
     Indication: Product used for unknown indication
     Dosage: 2 H PRIOR TO DELIVERY

REACTIONS (13)
  - Pneumoperitoneum [Unknown]
  - Neonatal respiratory distress [Unknown]
  - Patent ductus arteriosus [Recovered/Resolved]
  - Breech presentation [Recovered/Resolved]
  - Premature baby [Unknown]
  - Low birth weight baby [Unknown]
  - Neonatal intestinal perforation [Recovered/Resolved]
  - Gastrointestinal necrosis [Unknown]
  - Intestinal ischaemia [Unknown]
  - Neonatal intestinal dilatation [Unknown]
  - Developmental delay [Unknown]
  - Hypotonia neonatal [Unknown]
  - Foetal exposure during pregnancy [Recovered/Resolved]
